FAERS Safety Report 5137442-5 (Version None)
Quarter: 2006Q4

REPORT INFORMATION
  Report Type: 
  Country: None (occurrence: None)
  Receive Date: 20061030
  Receipt Date: 20051104
  Transmission Date: 20070319
  Serious: No
  Sender: FDA-Public Use
  Company Number: US-GLAXOSMITHKLINE-A0580898A

PATIENT
  Age: 64 Year
  Sex: Female

DRUGS (9)
  1. ADVAIR HFA [Suspect]
     Indication: ASTHMA
     Route: 055
     Dates: start: 20050101
  2. FLOVENT [Suspect]
     Indication: ASTHMA
     Dosage: 2PUFF TWICE PER DAY
     Route: 055
  3. ACCOLATE [Concomitant]
  4. COMBIVENT [Concomitant]
  5. BREATHAIRE [Concomitant]
  6. THEO-DUR [Concomitant]
  7. CLARINEX [Concomitant]
  8. FLONASE [Concomitant]
  9. FLOVENT [Concomitant]
     Route: 055
     Dates: start: 19970101

REACTIONS (2)
  - CHEST DISCOMFORT [None]
  - SUFFOCATION FEELING [None]
